FAERS Safety Report 12580139 (Version 2)
Quarter: 2016Q3

REPORT INFORMATION
  Report Type: Other
  Country: ES (occurrence: ES)
  Receive Date: 20160721
  Receipt Date: 20160922
  Transmission Date: 20161109
  Serious: Yes (Other)
  Sender: FDA-Public Use
  Company Number: ES-MEDAC PHARMA, INC.-1055369

PATIENT
  Age: 62 Year
  Sex: Female

DRUGS (4)
  1. IRON [Concomitant]
     Active Substance: IRON
     Route: 048
  2. METOJECT [Suspect]
     Active Substance: METHOTREXATE SODIUM
     Indication: RHEUMATOID ARTHRITIS
     Route: 058
     Dates: start: 20141016, end: 201503
  3. PREDNISONE. [Concomitant]
     Active Substance: PREDNISONE
  4. RANITIDINE. [Concomitant]
     Active Substance: RANITIDINE

REACTIONS (2)
  - Abdominal wall abscess [Recovered/Resolved]
  - Large granular lymphocytosis [Unknown]

NARRATIVE: CASE EVENT DATE: 20150317
